FAERS Safety Report 20830695 (Version 1)
Quarter: 2022Q2

REPORT INFORMATION
  Report Type: Spontaneous
  Country: IN (occurrence: IN)
  Receive Date: 20220515
  Receipt Date: 20220515
  Transmission Date: 20220721
  Serious: Yes (Hospitalization)
  Sender: FDA-Public Use
  Company Number: IN-SETONPHARMA-2022SETLIT00003

PATIENT
  Age: 85 Year
  Sex: Female

DRUGS (4)
  1. MEMANTINE HYDROCHLORIDE [Suspect]
     Active Substance: MEMANTINE HYDROCHLORIDE
     Indication: Dementia Alzheimer^s type
     Route: 065
  2. THYROXINE [Concomitant]
     Active Substance: LEVOTHYROXINE
  3. LINAGLIPTIN [Concomitant]
     Active Substance: LINAGLIPTIN
  4. ERYTHROPOIETIN [Concomitant]
     Active Substance: ERYTHROPOIETIN

REACTIONS (2)
  - Encephalopathy [Unknown]
  - Somnolence [Unknown]
